FAERS Safety Report 7411059-1 (Version None)
Quarter: 2011Q2

REPORT INFORMATION
  Report Type: 
  Country: None (occurrence: None)
  Receive Date: 20110413
  Receipt Date: 20110405
  Transmission Date: 20111010
  Serious: Yes (Other)
  Sender: FDA-Public Use
  Company Number: DE-B.I. PHARMACEUTICALS,INC./RIDGEFIELD-2011-DE-02267DE

PATIENT
  Sex: Female
  Weight: 64 kg

DRUGS (9)
  1. TORSEMIDE [Suspect]
  2. BISOPROLOL [Concomitant]
  3. CLONIDINE [Suspect]
     Indication: HYPERTENSION
     Dosage: 3 ANZ
     Route: 048
     Dates: start: 20100831
  4. RASILEZ [Suspect]
     Indication: HYPERTENSION
     Dosage: 150 MG
     Route: 048
     Dates: start: 20100826, end: 20100906
  5. HYDROCHLOROTHIAZIDE [Suspect]
     Indication: HYPERTENSION
     Dosage: 25 MG
     Dates: end: 20100906
  6. RAMIPRIL [Concomitant]
  7. TORSEMIDE [Concomitant]
     Dates: start: 20100822
  8. AMLODIPINE [Concomitant]
     Dates: start: 20100822
  9. ACE INHIBITOR NOS [Concomitant]

REACTIONS (3)
  - BLOOD CREATININE INCREASED [None]
  - GLOMERULAR FILTRATION RATE DECREASED [None]
  - BLOOD UREA INCREASED [None]
